FAERS Safety Report 11077530 (Version 2)
Quarter: 2015Q2

REPORT INFORMATION
  Report Type: Spontaneous
  Country: IT (occurrence: IT)
  Receive Date: 20150430
  Receipt Date: 20150521
  Transmission Date: 20150821
  Serious: Yes (Death, Hospitalization)
  Sender: FDA-Public Use
  Company Number: IT-AMGEN-ITASP2015041065

PATIENT
  Age: 70 Year
  Sex: Female
  Weight: 76 kg

DRUGS (3)
  1. NEULASTA [Suspect]
     Active Substance: PEGFILGRASTIM
     Indication: LEUKOPENIA
     Dosage: 6 MG, CYCLICAL
     Route: 058
     Dates: start: 20141212, end: 2015
  2. CISPLATIN. [Concomitant]
     Active Substance: CISPLATIN
     Indication: SMALL CELL LUNG CANCER
     Dosage: 108.6 MG, UNK
     Route: 042
     Dates: start: 20141027
  3. ETOPOSIDE. [Concomitant]
     Active Substance: ETOPOSIDE
     Indication: SMALL CELL LUNG CANCER
     Dosage: 144.8 MG, UNK
     Route: 042
     Dates: start: 20141027

REACTIONS (2)
  - Respiratory failure [Fatal]
  - Computerised tomogram thorax abnormal [Fatal]

NARRATIVE: CASE EVENT DATE: 20150113
